FAERS Safety Report 25832295 (Version 1)
Quarter: 2025Q3

REPORT INFORMATION
  Report Type: Spontaneous
  Country: US (occurrence: US)
  Receive Date: 20250922
  Receipt Date: 20250922
  Transmission Date: 20251020
  Serious: No
  Sender: ABBVIE
  Company Number: US-ABBVIE-6466191

PATIENT
  Age: 24 Year
  Sex: Male
  Weight: 90.718 kg

DRUGS (1)
  1. SKYRIZI [Suspect]
     Active Substance: RISANKIZUMAB-RZAA
     Indication: Colitis ulcerative
     Dosage: FORM STRENGTH: 360 MILLIGRAM
     Route: 058
     Dates: start: 202501

REACTIONS (3)
  - Injection site erythema [Recovering/Resolving]
  - Device issue [Not Recovered/Not Resolved]
  - Injection site papule [Recovering/Resolving]

NARRATIVE: CASE EVENT DATE: 20250917
